FAERS Safety Report 23234793 (Version 1)
Quarter: 2023Q4

REPORT INFORMATION
  Report Type: Spontaneous
  Country: US (occurrence: None)
  Receive Date: 20231127
  Receipt Date: 20231127
  Transmission Date: 20240110
  Serious: No
  Sender: FDA-Public Use
  Company Number: None

PATIENT

DRUGS (2)
  1. STERILE WATER FOR INHALATION [Suspect]
     Active Substance: WATER
  2. DEXTROSE [Suspect]
     Active Substance: DEXTROSE\DEXTROSE MONOHYDRATE

REACTIONS (2)
  - Product packaging confusion [None]
  - Wrong product administered [None]
